FAERS Safety Report 4796420-6 (Version None)
Quarter: 2005Q4

REPORT INFORMATION
  Report Type: 
  Country: None (occurrence: None)
  Receive Date: 20051011
  Receipt Date: 20050131
  Transmission Date: 20060501
  Serious: Yes (Life-Threatening)
  Sender: FDA-Public Use
  Company Number: 05P-163-0288894-00

PATIENT
  Sex: 0

DRUGS (1)
  1. TRICOR [Suspect]
     Dosage: 160 MG, PER ORAL
     Route: 048

REACTIONS (1)
  - PANCREATITIS [None]
